FAERS Safety Report 23628836 (Version 1)
Quarter: 2024Q1

REPORT INFORMATION
  Report Type: Spontaneous
  Country: ES (occurrence: ES)
  Receive Date: 20240313
  Receipt Date: 20240313
  Transmission Date: 20240409
  Serious: Yes (Other)
  Sender: FDA-Public Use
  Company Number: None

PATIENT
  Age: 33 Year
  Sex: Female

DRUGS (3)
  1. TALTZ [Suspect]
     Active Substance: IXEKIZUMAB
     Indication: Spondylitis
     Dosage: UNK UNK, UNKNOWN
     Route: 058
     Dates: start: 20231223, end: 20240120
  2. LYRICA [Concomitant]
     Active Substance: PREGABALIN
     Indication: Spondylitis
     Dosage: 25 MG, DAILY
     Route: 048
  3. PREDNISONE [Concomitant]
     Active Substance: PREDNISONE
     Indication: Spondylitis
     Dosage: 2.5 MG, WEEKLY (1/W)
     Route: 048

REACTIONS (2)
  - Heavy menstrual bleeding [Unknown]
  - Hirsutism [Unknown]

NARRATIVE: CASE EVENT DATE: 20240101
